FAERS Safety Report 22400068 (Version 2)
Quarter: 2023Q2

REPORT INFORMATION
  Report Type: Report from Study
  Country: US (occurrence: US)
  Receive Date: 20230602
  Receipt Date: 20230629
  Transmission Date: 20230722
  Serious: Yes (Other)
  Sender: FDA-Public Use
  Company Number: US-XERIS PHARMACEUTICALS-2022XER00061

PATIENT
  Sex: Female

DRUGS (5)
  1. KEVEYIS [Suspect]
     Active Substance: DICHLORPHENAMIDE
     Indication: Paralysis
     Dosage: ONE TABLET (50 MG), 2X/DAY AS DIRECTED
     Route: 048
     Dates: start: 20210420
  2. KEVEYIS [Suspect]
     Active Substance: DICHLORPHENAMIDE
     Dosage: ONE TABLET (50 MG), 2X/DAY
     Route: 048
  3. KEVEYIS [Suspect]
     Active Substance: DICHLORPHENAMIDE
     Dosage: ONE TABLET (50 MG), 2X/DAY
     Route: 048
  4. GABAPENTIN [Suspect]
     Active Substance: GABAPENTIN
     Dosage: UNK
  5. GABAPENTIN [Suspect]
     Active Substance: GABAPENTIN
     Dosage: INCREASED DAILY DOSAGE

REACTIONS (8)
  - Neuropathy peripheral [Unknown]
  - Pain in extremity [Recovering/Resolving]
  - Sensitivity to weather change [Recovering/Resolving]
  - Anaemia [Unknown]
  - Vitamin B12 deficiency [Unknown]
  - Paralysis [Recovering/Resolving]
  - Paraesthesia [Unknown]
  - Burning sensation [Not Recovered/Not Resolved]

NARRATIVE: CASE EVENT DATE: 20230101
